FAERS Safety Report 4906929-X (Version None)
Quarter: 2006Q1

REPORT INFORMATION
  Report Type: 
  Country: None (occurrence: None)
  Receive Date: 20060207
  Receipt Date: 20060201
  Transmission Date: 20060701
  Serious: Yes (Life-Threatening)
  Sender: FDA-Public Use
  Company Number: 64756/691

PATIENT
  Age: 35 Year
  Sex: Female

DRUGS (6)
  1. LEVONELLE-2   LEVONORGESTREL 3,75 MG   COATED TABLET [Suspect]
     Indication: POST COITAL CONTRACEPTION
     Dosage: 1 TAB (S), 1 DOSE ORAL
     Route: 048
     Dates: start: 20050819
  2. WARFARIN  WARFARIN  TABLET [Suspect]
     Indication: DEEP VEIN THROMBOSIS
     Dosage: ORAL
     Route: 048
  3. SERETIDE (FLUTICASONE/SALMETEROL) [Concomitant]
  4. SALBUTAMOL (SALBUTAMOL) [Concomitant]
  5. SUBUTEX [Concomitant]
  6. HEROIN (DIAMORPHINE) [Concomitant]

REACTIONS (3)
  - DRUG INTERACTION [None]
  - INTERNATIONAL NORMALISED RATIO INCREASED [None]
  - METRORRHAGIA [None]
